FAERS Safety Report 6382977-0 (Version None)
Quarter: 2009Q3

REPORT INFORMATION
  Report Type: 
  Country: None (occurrence: None)
  Receive Date: 20090928
  Receipt Date: 20090928
  Transmission Date: 20100115
  Serious: No
  Sender: FDA-Public Use
  Company Number: None

PATIENT
  Age: 27 Year
  Sex: Female
  Weight: 65.8 kg

DRUGS (1)
  1. DIPHENHYDRAMINE 25 MG ONCE IV [Suspect]
     Indication: PRURITUS
     Dosage: 25 MG ONCE IV
     Route: 042
     Dates: start: 20090913

REACTIONS (2)
  - EXOPHTHALMOS [None]
  - EXTRAPYRAMIDAL DISORDER [None]
